FAERS Safety Report 22638393 (Version 1)
Quarter: 2023Q2

REPORT INFORMATION
  Report Type: Spontaneous
  Country: GB (occurrence: GB)
  Receive Date: 20230626
  Receipt Date: 20230626
  Transmission Date: 20230722
  Serious: Yes (Other)
  Sender: FDA-Public Use
  Company Number: GB-STADA-278530

PATIENT
  Age: 70 Year
  Sex: Male

DRUGS (1)
  1. CHLORHEXIDINE\LIDOCAINE [Suspect]
     Active Substance: CHLORHEXIDINE\LIDOCAINE
     Indication: Product used for unknown indication
     Dosage: 5MG/1MG
     Route: 048

REACTIONS (6)
  - Aphasia [Not Recovered/Not Resolved]
  - Dysphagia [Not Recovered/Not Resolved]
  - Stomatitis [Not Recovered/Not Resolved]
  - Throat irritation [Not Recovered/Not Resolved]
  - Oral pain [Not Recovered/Not Resolved]
  - Oropharyngeal pain [Not Recovered/Not Resolved]
